FAERS Safety Report 8277652-1 (Version None)
Quarter: 2012Q2

REPORT INFORMATION
  Report Type: 
  Country: None (occurrence: None)
  Receive Date: 20120412
  Receipt Date: 20120409
  Transmission Date: 20120825
  Serious: No
  Sender: FDA-Public Use
  Company Number: US-PFIZER INC-2012088346

PATIENT
  Sex: Female
  Weight: 54.422 kg

DRUGS (3)
  1. SYNTHROID [Concomitant]
     Indication: THYROID DISORDER
     Dosage: 50 UG, DAILY
  2. CYTOMEL [Concomitant]
     Indication: THYROID DISORDER
     Dosage: HALF A TABLET OF 5MCG IN THE MORNING AND THE OTHER HALF IN THE AFTERNOON
  3. EFFEXOR XR [Suspect]
     Indication: ANXIETY
     Dosage: 37.5 MG, EVERY 3 DAYS
     Route: 048
     Dates: start: 20120101

REACTIONS (2)
  - WITHDRAWAL SYNDROME [None]
  - WRONG TECHNIQUE IN DRUG USAGE PROCESS [None]
